FAERS Safety Report 6238821-5 (Version None)
Quarter: 2009Q2

REPORT INFORMATION
  Report Type: 
  Country: None (occurrence: None)
  Receive Date: 20090622
  Receipt Date: 20090615
  Transmission Date: 20091009
  Serious: Yes (Hospitalization)
  Sender: FDA-Public Use
  Company Number: FR-ASTRAZENECA-2009CG01241

PATIENT
  Age: 55 Year
  Sex: Male

DRUGS (5)
  1. CRESTOR [Suspect]
     Indication: DYSLIPIDAEMIA
     Route: 048
     Dates: end: 20090101
  2. INIPOMP [Suspect]
     Route: 048
     Dates: end: 20090101
  3. METFORMIN HCL [Suspect]
     Indication: TYPE 2 DIABETES MELLITUS
     Route: 048
     Dates: end: 20090101
  4. TOPALGIC [Concomitant]
     Route: 048
  5. ARTOTEC [Concomitant]
     Route: 048

REACTIONS (5)
  - ANGIOEDEMA [None]
  - ASTHENIA [None]
  - DYSPNOEA [None]
  - PRURITUS [None]
  - VOMITING [None]
